FAERS Safety Report 7332194-2 (Version None)
Quarter: 2011Q1

REPORT INFORMATION
  Report Type: 
  Country: None (occurrence: None)
  Receive Date: 20110228
  Receipt Date: 20110228
  Transmission Date: 20110831
  Serious: Yes (Life-Threatening)
  Sender: FDA-Public Use
  Company Number: None

PATIENT
  Age: 70 Year
  Sex: Male
  Weight: 61.2356 kg

DRUGS (1)
  1. COMBIGAN [Suspect]
     Dosage: 1 DROP IN EYE 2 TIMES
     Route: 047
     Dates: start: 20110121, end: 20110207

REACTIONS (3)
  - LACRIMATION INCREASED [None]
  - EYE PAIN [None]
  - OCULAR HYPERAEMIA [None]
